FAERS Safety Report 4421363-7 (Version None)
Quarter: 2004Q3

REPORT INFORMATION
  Report Type: 
  Country: None (occurrence: None)
  Receive Date: 20040706
  Receipt Date: 20040618
  Transmission Date: 20050211
  Serious: No
  Sender: FDA-Public Use
  Company Number: 236774

PATIENT
  Age: 54 Year
  Sex: Female
  Weight: 91.6 kg

DRUGS (2)
  1. NOVOLOG [Suspect]
     Indication: INSULIN-REQUIRING TYPE II DIABETES MELLITUS
     Dosage: SLIDING SCALE, SUBCUTANEOUS
     Route: 058
     Dates: start: 20030101
  2. LANTUS [Concomitant]

REACTIONS (1)
  - BLOOD GLUCOSE DECREASED [None]
